FAERS Safety Report 8419962-0 (Version None)
Quarter: 2012Q2

REPORT INFORMATION
  Report Type: 
  Country: None (occurrence: None)
  Receive Date: 20120607
  Receipt Date: 20120601
  Transmission Date: 20120825
  Serious: Yes (Hospitalization)
  Sender: FDA-Public Use
  Company Number: IT-BAXTER-2012BAX005182

PATIENT
  Sex: Female

DRUGS (7)
  1. ETOPOSIDE [Suspect]
     Route: 042
     Dates: start: 20110714, end: 20110715
  2. CYTARABINE [Suspect]
     Route: 042
     Dates: start: 20110714, end: 20110715
  3. MABTHERA [Suspect]
     Route: 042
     Dates: start: 20110717, end: 20110717
  4. IFOSFAMIDE [Suspect]
     Indication: NON-HODGKIN'S LYMPHOMA
     Route: 042
     Dates: start: 20110711, end: 20110715
  5. CYCLOPHOSPHAMIDE [Suspect]
     Route: 042
     Dates: start: 20110708, end: 20110710
  6. VINCRISTINE [Suspect]
     Route: 042
     Dates: start: 20110711, end: 20110711
  7. METHOTREXATE [Suspect]
     Route: 042
     Dates: start: 20110711, end: 20110711

REACTIONS (2)
  - BACTERAEMIA [None]
  - FEBRILE NEUTROPENIA [None]
